FAERS Safety Report 21772171 (Version 1)
Quarter: 2022Q4

REPORT INFORMATION
  Report Type: Spontaneous
  Country: US (occurrence: None)
  Receive Date: 20221222
  Receipt Date: 20221222
  Transmission Date: 20230113
  Serious: Yes (unspecified)
  Sender: FDA-Public Use
  Company Number: None

PATIENT
  Age: 48 Year
  Sex: Female
  Weight: 55.9 kg

DRUGS (1)
  1. VENOFER [Suspect]
     Active Substance: IRON SUCROSE
     Dosage: FREQUENCY : ONCE;?
     Route: 042
     Dates: start: 20221220, end: 20221220

REACTIONS (4)
  - Rash [None]
  - Urticaria [None]
  - Peripheral swelling [None]
  - Infusion related reaction [None]
